FAERS Safety Report 18323346 (Version 3)
Quarter: 2021Q1

REPORT INFORMATION
  Report Type: Spontaneous
  Country: FR (occurrence: FR)
  Receive Date: 20200928
  Receipt Date: 20210309
  Transmission Date: 20210419
  Serious: Yes (Other)
  Sender: FDA-Public Use
  Company Number: NVSC2020FR258654

PATIENT
  Age: 71 Year
  Sex: Female
  Weight: 64 kg

DRUGS (7)
  1. ESTRADIOL. [Suspect]
     Active Substance: ESTRADIOL
     Indication: PRODUCT USED FOR UNKNOWN INDICATION
     Dosage: UNK
     Route: 065
  2. PYOSTACINE [Suspect]
     Active Substance: PRISTINAMYCIN
     Indication: TOOTH DISORDER
     Dosage: EVERY 6 MONTH
     Route: 065
     Dates: start: 1985
  3. ALDACTONE [Concomitant]
     Active Substance: SPIRONOLACTONE
     Indication: PRODUCT USED FOR UNKNOWN INDICATION
     Dosage: UNK
     Route: 065
  4. PYOSTACINE [Suspect]
     Active Substance: PRISTINAMYCIN
     Indication: PULMONARY MASS
     Dosage: EVERY 6 MONTH
     Route: 065
     Dates: start: 202009, end: 202009
  5. PYOSTACINE [Suspect]
     Active Substance: PRISTINAMYCIN
     Indication: TOOTH INFECTION
     Dosage: 2000 MG, QD
     Route: 065
  6. DUROGESIC [Concomitant]
     Active Substance: FENTANYL
     Indication: PRODUCT USED FOR UNKNOWN INDICATION
     Dosage: UNK
     Route: 065
  7. KARDEGIC [Concomitant]
     Active Substance: ASPIRIN DL-LYSINE
     Indication: PRODUCT USED FOR UNKNOWN INDICATION
     Dosage: UNK
     Route: 065

REACTIONS (24)
  - Condition aggravated [Unknown]
  - External ear disorder [Unknown]
  - Dyspepsia [Unknown]
  - Mucosal discolouration [Unknown]
  - Vasodilatation [Unknown]
  - Abdominal distension [Unknown]
  - Foot deformity [Not Recovered/Not Resolved]
  - Gait disturbance [Unknown]
  - Blister [Unknown]
  - Bone pain [Not Recovered/Not Resolved]
  - Dry skin [Not Recovered/Not Resolved]
  - Skin exfoliation [Unknown]
  - Scab [Not Recovered/Not Resolved]
  - COVID-19 [Unknown]
  - Aptyalism [Not Recovered/Not Resolved]
  - Muscular weakness [Unknown]
  - Muscle atrophy [Not Recovered/Not Resolved]
  - Cutaneous symptom [Not Recovered/Not Resolved]
  - Rash [Unknown]
  - Eczema [Not Recovered/Not Resolved]
  - Angioedema [Unknown]
  - Skin disorder [Unknown]
  - Dry eye [Not Recovered/Not Resolved]
  - Skin atrophy [Not Recovered/Not Resolved]

NARRATIVE: CASE EVENT DATE: 202009
